FAERS Safety Report 13300142 (Version 2)
Quarter: 2017Q2

REPORT INFORMATION
  Report Type: Spontaneous
  Country: JP (occurrence: JP)
  Receive Date: 20170306
  Receipt Date: 20170428
  Transmission Date: 20170830
  Serious: Yes (Other)
  Sender: FDA-Public Use
  Company Number: JP-US WORLDMEDS, LLC-USW201703-000368

PATIENT
  Age: 45 Year
  Sex: Female

DRUGS (6)
  1. AMOBAN [Concomitant]
     Active Substance: ZOPICLONE
  2. THYRADIN S [Concomitant]
     Active Substance: LEVOTHYROXINE SODIUM
  3. TSUMURA YOKUKANSAN [Concomitant]
     Indication: SCHIZOPHRENIA
     Route: 048
     Dates: start: 20151028, end: 20151115
  4. CONTOMIN [Concomitant]
     Active Substance: CHLORPROMAZINE
     Dates: start: 20151104
  5. TAMIFLU [Concomitant]
     Active Substance: OSELTAMIVIR PHOSPHATE
  6. BOTULINUM TOXIN TYPE B [Suspect]
     Active Substance: RIMABOTULINUMTOXINB
     Indication: TORTICOLLIS
     Route: 030
     Dates: start: 20151110, end: 20151110

REACTIONS (1)
  - Hepatitis acute [Recovered/Resolved]

NARRATIVE: CASE EVENT DATE: 20151114
